FAERS Safety Report 9883837 (Version 1)
Quarter: 2014Q1

REPORT INFORMATION
  Report Type: Spontaneous
  Country: US (occurrence: US)
  Receive Date: 20140210
  Receipt Date: 20140210
  Transmission Date: 20141002
  Serious: No
  Sender: FDA-Public Use
  Company Number: US-BAYER-2014-016177

PATIENT
  Sex: Female

DRUGS (3)
  1. ESTRADIOL HEMIHYDRATE (PATCH) [Suspect]
     Indication: PREMATURE MENOPAUSE
     Dosage: 37.5 ?G, OW
     Route: 062
     Dates: start: 201309, end: 20140122
  2. PROGESTERON [Concomitant]
     Indication: PREMATURE MENOPAUSE
     Dosage: 200 MG, QD
     Route: 048
  3. MULTIVITAMIN [Concomitant]
     Dosage: UNK
     Route: 048

REACTIONS (3)
  - Irritability [Recovered/Resolved]
  - Insomnia [Recovered/Resolved]
  - Product quality issue [None]
